FAERS Safety Report 20367136 (Version 1)
Quarter: 2022Q1

REPORT INFORMATION
  Report Type: Spontaneous
  Country: US (occurrence: US)
  Receive Date: 20220123
  Receipt Date: 20220123
  Transmission Date: 20220423
  Serious: No
  Sender: FDA-Public Use
  Company Number: US-BRACCO-2021US01890

PATIENT

DRUGS (1)
  1. CARDIOGEN-82 [Suspect]
     Active Substance: RUBIDIUM CHLORIDE RB-82
     Indication: Diagnostic procedure
     Dosage: UNK
     Dates: start: 20210503, end: 20210503

REACTIONS (2)
  - Intercepted medication error [Unknown]
  - Wrong technique in product usage process [Unknown]

NARRATIVE: CASE EVENT DATE: 20210503
